FAERS Safety Report 5390169-7 (Version None)
Quarter: 2007Q3

REPORT INFORMATION
  Report Type: 
  Country: None (occurrence: None)
  Receive Date: 20070716
  Receipt Date: 20070716
  Transmission Date: 20080115
  Serious: No
  Sender: FDA-Public Use
  Company Number: None

PATIENT
  Age: 47 Year
  Sex: Female
  Weight: 120.2032 kg

DRUGS (1)
  1. LOVENOX [Suspect]
     Indication: ORAL SURGERY
     Dosage: 50 UNITS TWICE DAILY SQ
     Route: 058
     Dates: start: 20070705, end: 20070709

REACTIONS (6)
  - DRUG HYPERSENSITIVITY [None]
  - EYE SWELLING [None]
  - INSOMNIA [None]
  - OEDEMA PERIPHERAL [None]
  - SKIN WARM [None]
  - SWELLING FACE [None]
